FAERS Safety Report 8845002 (Version 1)
Quarter: 2012Q4

REPORT INFORMATION
  Report Type: 
  Country: IT (occurrence: IT)
  Receive Date: 20121017
  Receipt Date: 20121017
  Transmission Date: 20130627
  Serious: Yes (Hospitalization)
  Sender: FDA-Public Use
  Company Number: IT-PFIZER INC-2012256324

PATIENT
  Age: 63 Year
  Sex: Male

DRUGS (8)
  1. MEDROL [Suspect]
     Dosage: half unit dose daily
     Route: 048
     Dates: start: 20121005, end: 20121005
  2. CARDIOASPIRIN [Suspect]
     Dosage: 100 mg, 1x/day
     Route: 048
     Dates: start: 20120101, end: 20121005
  3. PLAVIX [Suspect]
     Dosage: 75 mg, 1x/day
     Route: 048
     Dates: start: 20120101, end: 20121005
  4. CARDICOR [Concomitant]
     Route: 048
  5. TRIATEC [Concomitant]
     Route: 048
  6. TORVAST [Concomitant]
     Route: 048
  7. ZANTAC [Concomitant]
     Route: 048
  8. SEACOR [Concomitant]
     Route: 048

REACTIONS (1)
  - Abdominal pain upper [Unknown]
